FAERS Safety Report 9261618 (Version 3)
Quarter: 2014Q1

REPORT INFORMATION
  Report Type: Spontaneous
  Country: US (occurrence: US)
  Receive Date: 20130429
  Receipt Date: 20140103
  Transmission Date: 20141002
  Serious: Yes (Hospitalization, Other)
  Sender: FDA-Public Use
  Company Number: US-009507513-1304USA013286

PATIENT
  Sex: Female
  Weight: 77.98 kg

DRUGS (6)
  1. NUVARING [Suspect]
     Indication: CONTRACEPTION
     Dosage: UNK
     Route: 067
     Dates: start: 200904
  2. NUVARING [Suspect]
     Indication: MENORRHAGIA
     Dosage: UNK
     Route: 067
     Dates: start: 200909, end: 201009
  3. NUVARING [Suspect]
     Indication: DYSMENORRHOEA
     Dosage: UNK
     Route: 067
     Dates: start: 201104, end: 201109
  4. HYDROCODONE [Suspect]
     Indication: NECK PAIN
  5. HYDROCODONE [Suspect]
     Indication: BACK PAIN
  6. DEPO-PROVERA [Suspect]
     Indication: CONTRACEPTION
     Dosage: UNK
     Dates: end: 201009

REACTIONS (11)
  - Pulmonary embolism [Unknown]
  - Chest pain [Unknown]
  - Angina pectoris [Unknown]
  - Road traffic accident [Unknown]
  - Myalgia [Recovered/Resolved]
  - Myositis [Recovered/Resolved]
  - Transaminases increased [Unknown]
  - Gastrooesophageal reflux disease [Unknown]
  - Nausea [Unknown]
  - Weight increased [Unknown]
  - Off label use [Unknown]
